FAERS Safety Report 24936286 (Version 1)
Quarter: 2025Q1

REPORT INFORMATION
  Report Type: Report from Study
  Country: US (occurrence: US)
  Receive Date: 20250206
  Receipt Date: 20250206
  Transmission Date: 20250408
  Serious: Yes (Hospitalization)
  Sender: EXELIXIS
  Company Number: US-EXELIXIS-EXL-2024-002484

PATIENT
  Sex: Male

DRUGS (1)
  1. CABOMETYX [Suspect]
     Active Substance: CABOZANTINIB S-MALATE
     Indication: Pancreatic neuroendocrine tumour
     Dosage: 40 MG, QD
     Route: 048

REACTIONS (5)
  - Embolism [Unknown]
  - Blood pressure increased [Unknown]
  - Asthenia [Unknown]
  - Pain [Unknown]
  - Off label use [Unknown]
